FAERS Safety Report 4837631-0 (Version None)
Quarter: 2005Q4

REPORT INFORMATION
  Report Type: 
  Country: None (occurrence: None)
  Receive Date: 20051128
  Receipt Date: 20051122
  Transmission Date: 20060501
  Serious: Yes (Life-Threatening)
  Sender: FDA-Public Use
  Company Number: 2005CG01935

PATIENT
  Age: 34 Year
  Sex: Female

DRUGS (2)
  1. MARCAINE [Suspect]
     Indication: SPINAL ANAESTHESIA
     Route: 037
  2. SUFENTA [Suspect]
     Route: 042

REACTIONS (2)
  - ACUTE RESPIRATORY DISTRESS SYNDROME [None]
  - HYPOTENSION [None]
